FAERS Safety Report 10032195 (Version 5)
Quarter: 2015Q2

REPORT INFORMATION
  Report Type: Spontaneous
  Country: US (occurrence: US)
  Receive Date: 20140324
  Receipt Date: 20150625
  Transmission Date: 20150821
  Serious: Yes (Hospitalization, Other)
  Sender: FDA-Public Use
  Company Number: US-BAYER-2014-043700

PATIENT
  Age: 36 Year
  Sex: Female
  Weight: 52.15 kg

DRUGS (1)
  1. MIRENA [Suspect]
     Active Substance: LEVONORGESTREL
     Indication: CONTRACEPTION
     Dosage: 20 MCG/24HR, CONT
     Route: 015
     Dates: start: 20090107, end: 20130301

REACTIONS (6)
  - Pain [None]
  - Injury [None]
  - Uterine perforation [None]
  - Pregnancy with contraceptive device [None]
  - Asthenia [None]
  - Abortion induced [None]

NARRATIVE: CASE EVENT DATE: 201206
